FAERS Safety Report 13949633 (Version 1)
Quarter: 2017Q3

REPORT INFORMATION
  Report Type: Spontaneous
  Country: US (occurrence: US)
  Receive Date: 20170908
  Receipt Date: 20170908
  Transmission Date: 20171128
  Serious: No
  Sender: FDA-Public Use
  Company Number: US-ADAPT PHARMA INC-2017ADP00021

PATIENT
  Age: 32 Year
  Sex: Female
  Weight: 95.24 kg

DRUGS (3)
  1. NARCAN [Suspect]
     Active Substance: NALOXONE HYDROCHLORIDE
     Indication: PRODUCT USE IN UNAPPROVED INDICATION
     Dosage: 4 MG, ONCE
     Route: 045
     Dates: start: 20170628, end: 20170628
  2. PROZAC [Suspect]
     Active Substance: FLUOXETINE HYDROCHLORIDE
     Dosage: UNK
     Route: 048
  3. PROZAC [Suspect]
     Active Substance: FLUOXETINE HYDROCHLORIDE
     Dosage: ^SEVERAL^ PROZAC 20 MG CAPSULES, ONCE
     Route: 048
     Dates: start: 20170628, end: 20170628

REACTIONS (3)
  - Intentional product use issue [Recovered/Resolved]
  - Vomiting [Unknown]
  - Cough [Unknown]

NARRATIVE: CASE EVENT DATE: 20170628
